FAERS Safety Report 8113984-5 (Version None)
Quarter: 2012Q1

REPORT INFORMATION
  Report Type: 
  Country: None (occurrence: None)
  Receive Date: 20120203
  Receipt Date: 20120201
  Transmission Date: 20120608
  Serious: Yes (Hospitalization, Disabling)
  Sender: FDA-Public Use
  Company Number: US-MERCK-1112USA03108

PATIENT
  Age: 77 Year
  Sex: Female

DRUGS (5)
  1. METFORMIN [Concomitant]
     Route: 065
  2. MIRAPEX [Concomitant]
     Route: 065
  3. PRANDIN [Concomitant]
     Route: 065
  4. SINEMET [Suspect]
     Indication: PARKINSON'S DISEASE
     Dosage: 18-19 TABLETS DAILY
     Route: 048
  5. JANUMET [Concomitant]
     Route: 048

REACTIONS (5)
  - ABASIA [None]
  - PAIN IN EXTREMITY [None]
  - OVERDOSE [None]
  - ATRIOVENTRICULAR BLOCK COMPLETE [None]
  - MUSCULAR WEAKNESS [None]
